FAERS Safety Report 24996020 (Version 2)
Quarter: 2025Q2

REPORT INFORMATION
  Report Type: Spontaneous
  Country: US (occurrence: US)
  Receive Date: 20250221
  Receipt Date: 20250521
  Transmission Date: 20250716
  Serious: No
  Sender: CATALYST PHARMA
  Company Number: US-CATALYST PHARMACEUTICALS-US-CATA-24-01552

PATIENT
  Sex: Male
  Weight: 23.583 kg

DRUGS (4)
  1. AGAMREE [Suspect]
     Active Substance: VAMOROLONE
     Indication: Duchenne muscular dystrophy
     Dosage: 2.8 ML DAILY
     Route: 048
     Dates: start: 20240906, end: 20241126
  2. AGAMREE [Suspect]
     Active Substance: VAMOROLONE
     Dosage: 3.1 ML DAILY
     Route: 048
     Dates: start: 20241126
  3. CHILDREN^S MULTIVITAMIN [Concomitant]
     Indication: Product used for unknown indication
     Dosage: ONE TABLET DAILY
     Route: 065
  4. SELENIUM [Concomitant]
     Active Substance: SELENIUM
     Indication: Hypovitaminosis
     Dosage: 50 MCG DAILY
     Route: 065

REACTIONS (5)
  - Abdominal discomfort [Not Recovered/Not Resolved]
  - Pain [Not Recovered/Not Resolved]
  - Nausea [Not Recovered/Not Resolved]
  - Weight increased [Not Recovered/Not Resolved]
  - Helminthic infection [Not Recovered/Not Resolved]

NARRATIVE: CASE EVENT DATE: 20240101
